FAERS Safety Report 23130524 (Version 1)
Quarter: 2023Q4

REPORT INFORMATION
  Report Type: Spontaneous
  Country: US (occurrence: None)
  Receive Date: 20231030
  Receipt Date: 20231030
  Transmission Date: 20240109
  Serious: Yes (Other)
  Sender: FDA-Public Use
  Company Number: None

PATIENT
  Age: 92 Year
  Sex: Male
  Weight: 76.95 kg

DRUGS (1)
  1. DEFINITY [Suspect]
     Active Substance: PERFLUTREN

REACTIONS (5)
  - Tremor [None]
  - Erythema [None]
  - Aphasia [None]
  - Foaming at mouth [None]
  - Urinary incontinence [None]

NARRATIVE: CASE EVENT DATE: 20231030
